FAERS Safety Report 8898772 (Version 1)
Quarter: 2012Q4

REPORT INFORMATION
  Report Type: 
  Country: US (occurrence: US)
  Receive Date: 20121108
  Receipt Date: 20121108
  Transmission Date: 20130627
  Serious: No
  Sender: FDA-Public Use
  Company Number: US-AMGEN-USASP2012027898

PATIENT
  Age: 74 Year
  Sex: Female

DRUGS (3)
  1. ENBREL [Suspect]
     Indication: PSORIATIC ARTHROPATHY
     Dosage: 50 mg, qwk
     Dates: start: 2000, end: 2002
  2. ENBREL [Suspect]
     Indication: PSORIASIS
     Dosage: 50 mg, qwk
     Dates: start: 20120424
  3. REMICADE [Concomitant]
     Dosage: UNK
     Dates: start: 2002

REACTIONS (4)
  - Oedema peripheral [Not Recovered/Not Resolved]
  - Finger deformity [Not Recovered/Not Resolved]
  - Anal abscess [Recovered/Resolved]
  - Psoriasis [Not Recovered/Not Resolved]
